FAERS Safety Report 6717605-5 (Version None)
Quarter: 2010Q2

REPORT INFORMATION
  Report Type: 
  Country: None (occurrence: None)
  Receive Date: 20100503
  Receipt Date: 20100420
  Transmission Date: 20101027
  Serious: Yes (Hospitalization)
  Sender: FDA-Public Use
  Company Number: 2009AC000329

PATIENT
  Age: 55 Year
  Sex: Male
  Weight: 81.1939 kg

DRUGS (33)
  1. DIGOXIN [Suspect]
     Dosage: .25 MG;QD;PO
     Route: 048
     Dates: start: 20070221, end: 20070801
  2. DIGOXIN [Suspect]
     Dosage: 0.5 MG; 1X; PO
     Route: 048
     Dates: start: 20060201
  3. DIGOXIN [Suspect]
     Dosage: 0.125 MG;QD; PO
     Route: 048
     Dates: start: 20060201
  4. DIGOXIN [Suspect]
     Dosage: 0.25 MG; QD; PO
     Route: 048
     Dates: start: 20080101, end: 20090101
  5. ATENOLOL [Concomitant]
  6. ATIVAN [Concomitant]
  7. PROTONIX [Concomitant]
  8. CARDIZEM [Concomitant]
  9. COUMADIN [Concomitant]
  10. PHENERGAN [Concomitant]
  11. MORPHINE [Concomitant]
  12. ZOFRAN [Concomitant]
  13. LEVAQUIN [Concomitant]
  14. FLAGYL [Concomitant]
  15. VITAMIN K TAB [Concomitant]
  16. VIAGRA [Concomitant]
  17. TEMAZEPAM [Concomitant]
  18. CARISOPRODOL [Concomitant]
  19. UROXATRAL [Concomitant]
  20. DOXYCYCLINE [Concomitant]
  21. CARISOPRODOL [Concomitant]
  22. AMBIEN [Concomitant]
  23. ATENOLOL [Concomitant]
  24. SOTALOL HCL [Concomitant]
  25. ASPIRIN [Concomitant]
  26. DILTIAZEM HCL [Concomitant]
  27. PROILOSEC [Concomitant]
  28. LEVITRA [Concomitant]
  29. CIALIS [Concomitant]
  30. AZITHROMYCIN [Concomitant]
  31. TUSSIONEX [Concomitant]
  32. AMOXICILLIN [Concomitant]
  33. CORTISONE [Concomitant]

REACTIONS (25)
  - ABDOMINAL PAIN UPPER [None]
  - ANXIETY [None]
  - ATRIAL FIBRILLATION [None]
  - CHEST X-RAY ABNORMAL [None]
  - CHILLS [None]
  - DIVERTICULUM [None]
  - DUODENITIS [None]
  - ERYTHEMA [None]
  - FLUSHING [None]
  - GALLBLADDER POLYP [None]
  - GASTRIC DISORDER [None]
  - GASTROINTESTINAL SOUNDS ABNORMAL [None]
  - HEPATIC CYST [None]
  - HIATUS HERNIA [None]
  - INJURY [None]
  - INSOMNIA [None]
  - INTERNATIONAL NORMALISED RATIO INCREASED [None]
  - INTESTINAL POLYP [None]
  - NAUSEA [None]
  - PROSTATIC SPECIFIC ANTIGEN INCREASED [None]
  - PROTHROMBIN TIME PROLONGED [None]
  - PYREXIA [None]
  - RENAL CYST [None]
  - THERAPEUTIC AGENT TOXICITY [None]
  - URINARY TRACT DISORDER [None]
